FAERS Safety Report 9539998 (Version 1)
Quarter: 2013Q3

REPORT INFORMATION
  Report Type: Spontaneous
  Country: US (occurrence: US)
  Receive Date: 20130920
  Receipt Date: 20130920
  Transmission Date: 20140515
  Serious: Yes (Other)
  Sender: FDA-Public Use
  Company Number: US-ASTRAZENECA-2013SE69345

PATIENT
  Age: 44 Year
  Sex: Female

DRUGS (1)
  1. PRILOSEC [Suspect]
     Route: 048
     Dates: end: 1999

REACTIONS (2)
  - Gastrointestinal haemorrhage [Recovered/Resolved]
  - Neutropenia [Recovered/Resolved]
